FAERS Safety Report 8508988 (Version 2)
Quarter: 2014Q1

REPORT INFORMATION
  Report Type: Spontaneous
  Country: US (occurrence: US)
  Receive Date: 20120412
  Receipt Date: 20140328
  Transmission Date: 20141002
  Serious: No
  Sender: FDA-Public Use
  Company Number: US-ASTRAZENECA-2012SE06224

PATIENT
  Age: 61 Year
  Sex: Male
  Weight: 89.8 kg

DRUGS (10)
  1. NEXIUM [Suspect]
     Indication: GASTROOESOPHAGEAL REFLUX DISEASE
     Route: 048
  2. NEXIUM [Suspect]
     Indication: HIATUS HERNIA
     Route: 048
  3. NEXIUM [Suspect]
     Indication: GASTROOESOPHAGEAL REFLUX DISEASE
     Route: 048
     Dates: start: 2010, end: 201403
  4. NEXIUM [Suspect]
     Indication: HIATUS HERNIA
     Route: 048
     Dates: start: 2010, end: 201403
  5. VYTORIN [Concomitant]
     Indication: BLOOD CHOLESTEROL ABNORMAL
  6. VITAMIN D [Concomitant]
     Indication: VITAMIN D DECREASED
  7. XANAX [Concomitant]
     Indication: PANIC ATTACK
  8. XANAX [Concomitant]
     Indication: ANXIETY
  9. VICODIN [Concomitant]
     Indication: ARTHROPATHY
  10. VICODIN [Concomitant]
     Indication: ARTHRITIS

REACTIONS (8)
  - Gastrooesophageal reflux disease [Not Recovered/Not Resolved]
  - Regurgitation [Unknown]
  - Aspiration [Recovered/Resolved]
  - Muscle spasms [Not Recovered/Not Resolved]
  - Malaise [Unknown]
  - Abdominal discomfort [Unknown]
  - Intentional drug misuse [Not Recovered/Not Resolved]
  - Drug dose omission [Not Recovered/Not Resolved]
